FAERS Safety Report 18130810 (Version 1)
Quarter: 2020Q3

REPORT INFORMATION
  Report Type: Spontaneous
  Country: US (occurrence: US)
  Receive Date: 20200810
  Receipt Date: 20200810
  Transmission Date: 20201103
  Serious: No
  Sender: FDA-Public Use
  Company Number: US-009507513-2007USA008438

PATIENT
  Age: 54 Year
  Sex: Male

DRUGS (9)
  1. ISOPROTERENOL. [Concomitant]
     Active Substance: ISOPROTERENOL
     Dosage: UNK
     Route: 041
  2. LORAZEPAM. [Concomitant]
     Active Substance: LORAZEPAM
     Indication: ANXIETY
     Dosage: UNK
  3. CARBAMAZEPINE. [Concomitant]
     Active Substance: CARBAMAZEPINE
     Indication: GLOSSOPHARYNGEAL NEURALGIA
     Dosage: 300 MILLIGRAM, BID
  4. ATROPINE. [Concomitant]
     Active Substance: ATROPINE
     Indication: BRADYCARDIA
  5. MAXALT [Suspect]
     Active Substance: RIZATRIPTAN BENZOATE
     Indication: GLOSSOPHARYNGEAL NEURALGIA
     Dosage: UNK, PRN
     Route: 048
  6. ATROPINE. [Concomitant]
     Active Substance: ATROPINE
     Indication: HYPOTENSION
  7. DOPAMINE [Concomitant]
     Active Substance: DOPAMINE HYDROCHLORIDE
     Indication: BRADYCARDIA
     Dosage: UNK
     Route: 041
  8. GABAPENTIN. [Concomitant]
     Active Substance: GABAPENTIN
     Indication: GLOSSOPHARYNGEAL NEURALGIA
     Dosage: 300 MILLIGRAM, TID
  9. DOPAMINE [Concomitant]
     Active Substance: DOPAMINE HYDROCHLORIDE
     Indication: HYPOTENSION

REACTIONS (1)
  - Product use in unapproved indication [Unknown]
